FAERS Safety Report 5214605-1 (Version None)
Quarter: 2007Q1

REPORT INFORMATION
  Report Type: 
  Country: None (occurrence: None)
  Receive Date: 20070117
  Receipt Date: 20070105
  Transmission Date: 20070707
  Serious: No
  Sender: FDA-Public Use
  Company Number: 2007-152703-NL

PATIENT
  Age: 49 Year
  Sex: Male

DRUGS (4)
  1. DANAPAROID SODIUM [Suspect]
     Indication: HEPARIN-INDUCED THROMBOCYTOPENIA
     Dosage: /50 ANTI_XA Q1HR INTRAVENOUS BOLUS
     Route: 040
     Dates: start: 19980120
  2. DANAPAROID SODIUM [Suspect]
     Indication: HEPARIN-INDUCED THROMBOCYTOPENIA
     Dosage: /50 ANTI_XA Q1HR INTRAVENOUS BOLUS
     Route: 040
     Dates: start: 19980120
  3. APROTININ [Concomitant]
  4. HEPARIN [Concomitant]

REACTIONS (3)
  - DRUG INEFFECTIVE [None]
  - PERICARDIAL DISEASE [None]
  - THROMBOSIS [None]
